FAERS Safety Report 5618415-2 (Version None)
Quarter: 2008Q1

REPORT INFORMATION
  Report Type: 
  Country: None (occurrence: None)
  Receive Date: 20080114
  Receipt Date: 20070410
  Transmission Date: 20080703
  Serious: Yes (Hospitalization)
  Sender: FDA-Public Use
  Company Number: A03200702568

PATIENT
  Age: 66 Year
  Sex: Male
  Weight: 92.97 kg

DRUGS (6)
  1. PLAVIX [Suspect]
     Indication: STENT PLACEMENT
     Dosage: 75 MG QD, ORAL
     Route: 048
     Dates: start: 20070101, end: 20070201
  2. WARFARIN SODIUM [Concomitant]
  3. ACETYLSALICYLIC ACID SRT [Concomitant]
  4. METOPROLOL TARTRATE [Concomitant]
  5. AMIODARONE HYDROCHLORIDE [Concomitant]
  6. EZETIMIBE [Concomitant]

REACTIONS (4)
  - HAEMATOCHEZIA [None]
  - HAEMOGLOBIN DECREASED [None]
  - MYOCARDIAL INFARCTION [None]
  - SMALL INTESTINAL HAEMORRHAGE [None]
